FAERS Safety Report 21990456 (Version 3)
Quarter: 2023Q1

REPORT INFORMATION
  Report Type: Spontaneous
  Country: US (occurrence: US)
  Receive Date: 20230214
  Receipt Date: 20230303
  Transmission Date: 20230417
  Serious: No
  Sender: FDA-Public Use
  Company Number: US-PFIZER INC-PV202300026299

PATIENT
  Age: 59 Year
  Sex: Female

DRUGS (1)
  1. XELJANZ XR [Suspect]
     Active Substance: TOFACITINIB CITRATE
     Dosage: UNK
     Dates: start: 20230208

REACTIONS (7)
  - Abdominal discomfort [Unknown]
  - Pain in extremity [Unknown]
  - Arthralgia [Unknown]
  - Peripheral swelling [Unknown]
  - Chest pain [Unknown]
  - Dyspnoea [Unknown]
  - Hypoglycaemia [Unknown]

NARRATIVE: CASE EVENT DATE: 20230201
